FAERS Safety Report 7612273 (Version 2)
Quarter: 2012Q4

REPORT INFORMATION
  Report Type: 
  Country: NO (occurrence: NO)
  Receive Date: 20100929
  Receipt Date: 20121213
  Transmission Date: 20130627
  Serious: Yes (Life-Threatening, Hospitalization, Other)
  Sender: FDA-Public Use
  Company Number: NO-MERCK-1009NOR00016

PATIENT
  Age: 61 Year
  Sex: Female

DRUGS (3)
  1. JANUMET [Suspect]
     Indication: DIABETES MELLITUS
     Dosage: 1 DF, bid
     Route: 048
     Dates: start: 20100522, end: 201007
  2. LIPITOR [Suspect]
     Indication: HYPERLIPIDAEMIA
     Dosage: 40 mg, qd
     Route: 048
     Dates: start: 20100522, end: 201007
  3. COZAAR [Concomitant]
     Indication: HYPERTENSION
     Dosage: 50 mg, qd
     Route: 048

REACTIONS (4)
  - Hepatitis toxic [Recovered/Resolved]
  - Pyrexia [Recovered/Resolved]
  - Abdominal pain [Recovered/Resolved]
  - Decreased appetite [Recovered/Resolved]
